FAERS Safety Report 24094785 (Version 1)
Quarter: 2024Q3

REPORT INFORMATION
  Report Type: Spontaneous
  Country: US (occurrence: US)
  Receive Date: 20240716
  Receipt Date: 20240716
  Transmission Date: 20241017
  Serious: Yes (Death)
  Sender: TEVA
  Company Number: US-TEVA-VS-3219139

PATIENT
  Age: 57 Year
  Sex: Male

DRUGS (4)
  1. AMANTADINE [Suspect]
     Active Substance: AMANTADINE
     Indication: Rabies
     Route: 065
  2. MIDAZOLAM [Suspect]
     Active Substance: MIDAZOLAM
     Indication: Rabies
     Route: 065
  3. KETAMINE [Suspect]
     Active Substance: KETAMINE
     Indication: Rabies
     Route: 065
  4. FAVIPIRAVIR [Suspect]
     Active Substance: FAVIPIRAVIR
     Indication: Rabies
     Dosage: ON DAY-9
     Route: 065

REACTIONS (1)
  - Drug ineffective [Fatal]
